FAERS Safety Report 16058683 (Version 2)
Quarter: 2019Q1

REPORT INFORMATION
  Report Type: Spontaneous
  Country: PT (occurrence: PT)
  Receive Date: 20190311
  Receipt Date: 20190315
  Transmission Date: 20190418
  Serious: Yes (Death, Other)
  Sender: FDA-Public Use
  Company Number: PT-GILEAD-2019-0395507

PATIENT
  Age: 40 Year
  Sex: Male

DRUGS (8)
  1. ETRAVIRINE [Concomitant]
     Active Substance: ETRAVIRINE
  2. KIVEXA [Concomitant]
     Active Substance: ABACAVIR SULFATE\LAMIVUDINE
  3. GABAPENTINE [Concomitant]
     Active Substance: GABAPENTIN
  4. INDERAL [Concomitant]
     Active Substance: PROPRANOLOL HYDROCHLORIDE
  5. OXAZEPAM. [Concomitant]
     Active Substance: OXAZEPAM
  6. TRAMADOL. [Concomitant]
     Active Substance: TRAMADOL
  7. IBUPROFEN. [Concomitant]
     Active Substance: IBUPROFEN
  8. HARVONI [Suspect]
     Active Substance: LEDIPASVIR\SOFOSBUVIR
     Indication: CHRONIC HEPATITIS C
     Dosage: UNK
     Route: 065
     Dates: start: 20160419, end: 20160711

REACTIONS (2)
  - Product dose omission [Unknown]
  - Death [Fatal]
